FAERS Safety Report 8569978 (Version 3)
Quarter: 2013Q3

REPORT INFORMATION
  Report Type: Report from Study
  Country: CN (occurrence: CN)
  Receive Date: 20120518
  Receipt Date: 20130924
  Transmission Date: 20140515
  Serious: Yes (Hospitalization)
  Sender: FDA-Public Use
  Company Number: CN-ROCHE-1058687

PATIENT
  Age: 33 Year
  Sex: Male
  Weight: 77.5 kg

DRUGS (2)
  1. PEG-INTERFERON ALFA 2A [Suspect]
     Indication: CHRONIC HEPATITIS B
     Dosage: DATE OF LAST DOSE PRIOR TO ABNORMAL LIVER FUNCTION- 10/APR/2012.
     Route: 025
     Dates: start: 20100720, end: 20120417
  2. PEG-INTERFERON ALFA 2A [Suspect]
     Route: 025
     Dates: start: 20120426

REACTIONS (2)
  - Chronic hepatitis B [Recovered/Resolved]
  - Hepatic function abnormal [Not Recovered/Not Resolved]
